FAERS Safety Report 5716478-7 (Version None)
Quarter: 2008Q2

REPORT INFORMATION
  Report Type: 
  Country: None (occurrence: None)
  Receive Date: 20080415
  Receipt Date: 20071108
  Transmission Date: 20081010
  Serious: Yes (Other)
  Sender: FDA-Public Use
  Company Number: 2007-05028

PATIENT
  Age: 38 Year
  Sex: Female
  Weight: 76.6 kg

DRUGS (2)
  1. FERRLECIT [Suspect]
     Indication: IRON DEFICIENCY ANAEMIA
     Dosage: 125MG DILUTED IN 100CC NS/1H,1/W, INTRAVENOUS
     Route: 042
     Dates: start: 20070801, end: 20071001
  2. PRENATAL VITAMINS (TOCOPHEROL, NICOTINIC ACID, RETINOL, VITAMIN D NOS, [Concomitant]

REACTIONS (5)
  - ANAPHYLACTOID REACTION [None]
  - DYSPNOEA [None]
  - OCULAR HYPERAEMIA [None]
  - THROAT TIGHTNESS [None]
  - URTICARIA [None]
